FAERS Safety Report 14221715 (Version 1)
Quarter: 2017Q4

REPORT INFORMATION
  Report Type: Spontaneous
  Country: FR (occurrence: FR)
  Receive Date: 20171123
  Receipt Date: 20171123
  Transmission Date: 20180321
  Serious: Yes (Other)
  Sender: FDA-Public Use
  Company Number: FR-MERCK KGAA-2034983

PATIENT
  Age: 68 Year
  Sex: Female

DRUGS (2)
  1. NOVOTHYROX [Suspect]
     Active Substance: LEVOTHYROXINE SODIUM
     Indication: PRODUCT USED FOR UNKNOWN INDICATION
  2. LEVOTHYROX 50 [Suspect]
     Active Substance: LEVOTHYROXINE

REACTIONS (12)
  - Alopecia [None]
  - Headache [None]
  - Arrhythmia [None]
  - Hot flush [None]
  - Hyperhidrosis [None]
  - Abdominal discomfort [None]
  - Arthralgia [None]
  - Nausea [None]
  - Pruritus generalised [None]
  - Myalgia [None]
  - Fatigue [None]
  - Tachycardia [None]

NARRATIVE: CASE EVENT DATE: 2016
